FAERS Safety Report 7858578-1 (Version None)
Quarter: 2011Q4

REPORT INFORMATION
  Report Type: 
  Country: None (occurrence: None)
  Receive Date: 20111027
  Receipt Date: 20101217
  Transmission Date: 20120403
  Serious: Yes (Death, Other)
  Sender: FDA-Public Use
  Company Number: US-BAYER-201020477NA

PATIENT
  Sex: Female
  Weight: 74.83 kg

DRUGS (4)
  1. YASMIN [Suspect]
     Dosage: UNK
     Dates: start: 20050920, end: 20051018
  2. LEVAQUIN [Concomitant]
  3. YASMIN [Suspect]
     Indication: PRODUCT USED FOR UNKNOWN INDICATION
     Dosage: AS USED DOSE: UNK
     Route: 048
     Dates: start: 20040601, end: 20050601
  4. ALBUTEROL [Concomitant]

REACTIONS (1)
  - PULMONARY EMBOLISM [None]
